FAERS Safety Report 15947774 (Version 1)
Quarter: 2019Q1

REPORT INFORMATION
  Report Type: Spontaneous
  Country: TR (occurrence: TR)
  Receive Date: 20190212
  Receipt Date: 20190212
  Transmission Date: 20190417
  Serious: Yes (Other)
  Sender: FDA-Public Use
  Company Number: TR-ASTELLAS-2019US004804

PATIENT
  Age: 38 Year
  Sex: Female

DRUGS (6)
  1. ALBENDAZOLE. [Interacting]
     Active Substance: ALBENDAZOLE
     Indication: ECHINOCOCCIASIS
     Route: 065
  2. MYCOPHENOLATE MOFETIL. [Concomitant]
     Active Substance: MYCOPHENOLATE MOFETIL
     Indication: RENAL TRANSPLANT
     Dosage: UNK UNK, UNKNOWN FREQ.
     Route: 065
  3. TACROLIMUS. [Interacting]
     Active Substance: TACROLIMUS
     Dosage: UNK UNK, UNKNOWN FREQ.
     Route: 065
  4. ALBENDAZOLE. [Interacting]
     Active Substance: ALBENDAZOLE
     Dosage: UNK UNK, UNKNOWN FREQ. (DECREASED BY ONE-HALF)
     Route: 065
  5. TACROLIMUS. [Suspect]
     Active Substance: TACROLIMUS
     Indication: RENAL TRANSPLANT
     Dosage: UNK UNK, UNKNOWN FREQ.
     Route: 065
  6. METHYLPREDNISOLONE. [Concomitant]
     Active Substance: METHYLPREDNISOLONE
     Indication: RENAL TRANSPLANT
     Dosage: UNK UNK, UNKNOWN FREQ.
     Route: 065

REACTIONS (7)
  - Neutropenia [Recovered/Resolved]
  - Drug interaction [Unknown]
  - Hepatotoxicity [Recovered/Resolved]
  - Blood creatinine increased [Recovered/Resolved]
  - Echinococciasis [Recovered/Resolved]
  - Immunosuppressant drug level increased [Unknown]
  - Proteinuria [Recovered/Resolved]
